FAERS Safety Report 14476016 (Version 2)
Quarter: 2018Q1

REPORT INFORMATION
  Report Type: Spontaneous
  Country: US (occurrence: US)
  Receive Date: 20180201
  Receipt Date: 20180214
  Transmission Date: 20180509
  Serious: Yes (Hospitalization)
  Sender: FDA-Public Use
  Company Number: US-TEVA-2018-US-853844

PATIENT
  Age: 65 Year
  Sex: Male

DRUGS (8)
  1. WARFARIN [Suspect]
     Active Substance: WARFARIN
     Indication: TUMOUR THROMBOSIS
     Dosage: 5 MILLIGRAM DAILY;
     Route: 065
  2. CARVEDILOL. [Concomitant]
     Active Substance: CARVEDILOL
     Route: 065
  3. FENTANYL. [Concomitant]
     Active Substance: FENTANYL
     Route: 065
  4. PANTOPRAZOLE [Concomitant]
     Active Substance: PANTOPRAZOLE
     Route: 065
  5. WARFARIN [Interacting]
     Active Substance: WARFARIN
     Dosage: 2.5MG FOR ONE DOSE ADMINISTRATION
     Route: 065
  6. AXITINIB [Interacting]
     Active Substance: AXITINIB
     Indication: CLEAR CELL RENAL CELL CARCINOMA
     Dosage: 10 MILLIGRAM DAILY;
     Route: 065
     Dates: start: 201408
  7. HEPARIN [Concomitant]
     Active Substance: HEPARIN SODIUM
     Indication: TUMOUR THROMBOSIS
     Route: 050
  8. OXYCODONE [Concomitant]
     Active Substance: OXYCODONE
     Route: 065

REACTIONS (2)
  - Drug interaction [Recovering/Resolving]
  - Anticoagulation drug level above therapeutic [Recovering/Resolving]
